FAERS Safety Report 9885933 (Version 3)
Quarter: 2014Q2

REPORT INFORMATION
  Report Type: Spontaneous
  Country: US (occurrence: US)
  Receive Date: 20140210
  Receipt Date: 20140620
  Transmission Date: 20141212
  Serious: Yes (Hospitalization)
  Sender: FDA-Public Use
  Company Number: US-GLAXOSMITHKLINE-A1059638A

PATIENT
  Age: 49 Year
  Sex: Female

DRUGS (5)
  1. VENTOLIN HFA [Suspect]
     Indication: ASTHMA
     Dosage: 2PUFF AS REQUIRED
     Route: 055
     Dates: start: 200907
  2. SEROQUEL [Concomitant]
  3. TRAZODONE [Concomitant]
  4. SYMBICORT [Concomitant]
  5. ADVAIR [Concomitant]
     Indication: PRODUCT USED FOR UNKNOWN INDICATION
     Route: 065
     Dates: start: 201004

REACTIONS (10)
  - Cholecystectomy [Unknown]
  - Gallbladder pain [Not Recovered/Not Resolved]
  - Oropharyngeal discomfort [Not Recovered/Not Resolved]
  - Pancreatic enlargement [Not Recovered/Not Resolved]
  - Procedural pain [Not Recovered/Not Resolved]
  - Computerised tomogram abnormal [Unknown]
  - Gallbladder disorder [Unknown]
  - Pancreatic insufficiency [Unknown]
  - Dyspnoea [Not Recovered/Not Resolved]
  - Inhalation therapy [Not Recovered/Not Resolved]
